FAERS Safety Report 7941015-6 (Version None)
Quarter: 2011Q4

REPORT INFORMATION
  Report Type: 
  Country: None (occurrence: None)
  Receive Date: 20111128
  Receipt Date: 20111121
  Transmission Date: 20120403
  Serious: Yes (Death, Hospitalization, Other)
  Sender: FDA-Public Use
  Company Number: US-JNJFOC-20110309913

PATIENT
  Sex: Male

DRUGS (7)
  1. LEVAQUIN [Suspect]
     Indication: GROIN ABSCESS
     Route: 048
     Dates: start: 20060822
  2. VANCOMYCIN [Suspect]
     Indication: DIASTOLIC DYSFUNCTION
     Route: 065
  3. VANCOMYCIN [Suspect]
     Indication: RENAL FAILURE CHRONIC
     Route: 065
  4. VANCOMYCIN [Suspect]
     Indication: GROIN ABSCESS
     Route: 065
  5. PENICILLIN [Suspect]
     Indication: PRODUCT USED FOR UNKNOWN INDICATION
  6. LEVAQUIN [Suspect]
     Indication: RENAL FAILURE CHRONIC
     Route: 048
     Dates: start: 20060822
  7. LEVAQUIN [Suspect]
     Indication: DIASTOLIC DYSFUNCTION
     Route: 048
     Dates: start: 20060822

REACTIONS (5)
  - PSEUDOMONAL SEPSIS [None]
  - DRUG RASH WITH EOSINOPHILIA AND SYSTEMIC SYMPTOMS [None]
  - LARGE INTESTINE PERFORATION [None]
  - STEVENS-JOHNSON SYNDROME [None]
  - RENAL FAILURE [None]
